FAERS Safety Report 23301348 (Version 1)
Quarter: 2023Q4

REPORT INFORMATION
  Report Type: Spontaneous
  Country: CA (occurrence: None)
  Receive Date: 20231215
  Receipt Date: 20231215
  Transmission Date: 20240109
  Serious: Yes (Other)
  Sender: FDA-Public Use
  Company Number: None

PATIENT
  Age: 47 Year
  Sex: Female

DRUGS (2)
  1. CEPHALEXIN [Suspect]
     Active Substance: CEPHALEXIN
     Indication: Preoperative care
     Dosage: FREQUENCY : EVERY 6 HOURS;?
     Dates: start: 20231204, end: 20231207
  2. INSULIN NOS [Concomitant]
     Active Substance: INSULIN NOS

REACTIONS (16)
  - Neurotoxicity [None]
  - Blood pressure increased [None]
  - Product formulation issue [None]
  - Heart rate increased [None]
  - Dysgeusia [None]
  - Dry mouth [None]
  - Hypoaesthesia [None]
  - Paraesthesia [None]
  - Dizziness [None]
  - Syncope [None]
  - Anxiety [None]
  - Delirium [None]
  - Hypoaesthesia [None]
  - Hypoaesthesia [None]
  - Paraesthesia [None]
  - Abdominal discomfort [None]

NARRATIVE: CASE EVENT DATE: 20231204
